FAERS Safety Report 18012736 (Version 1)
Quarter: 2020Q3

REPORT INFORMATION
  Report Type: Spontaneous
  Country: US (occurrence: US)
  Receive Date: 20200710
  Receipt Date: 20200710
  Transmission Date: 20201103
  Serious: Yes (Other)
  Sender: FDA-Public Use
  Company Number: None

PATIENT
  Age: 73 Year
  Sex: Female
  Weight: 72 kg

DRUGS (12)
  1. METFORMIN HCL [Concomitant]
     Active Substance: METFORMIN HYDROCHLORIDE
  2. BENAZEPRIL HCL [Concomitant]
     Active Substance: BENAZEPRIL HYDROCHLORIDE
  3. VITAMIN B12 [Concomitant]
     Active Substance: CYANOCOBALAMIN
  4. GLIPIZIDE. [Concomitant]
     Active Substance: GLIPIZIDE
  5. FENOFIBRATE. [Concomitant]
     Active Substance: FENOFIBRATE
  6. ASSURED INSTANT HAND SANITIZER ALOE AND MOISTURIZERS [Suspect]
     Active Substance: ALCOHOL
     Indication: INFECTION PROPHYLAXIS
     Dosage: ?          OTHER STRENGTH:OUNCES;?
     Route: 061
     Dates: start: 20200310, end: 20200709
  7. JARDIANCE [Concomitant]
     Active Substance: EMPAGLIFLOZIN
  8. ESCITALOPRAM [Concomitant]
     Active Substance: ESCITALOPRAM OXALATE
  9. ROSUVASTIN [Concomitant]
     Active Substance: ROSUVASTATIN
  10. CALTRATE [Concomitant]
     Active Substance: CALCIUM CARBONATE
  11. WOMEN^S MULTIVITAMIN [Concomitant]
  12. VITAMIN D3 [Concomitant]
     Active Substance: CHOLECALCIFEROL

REACTIONS (3)
  - Headache [None]
  - Vision blurred [None]
  - Vertigo [None]

NARRATIVE: CASE EVENT DATE: 20200701
